FAERS Safety Report 5366396-1 (Version None)
Quarter: 2007Q2

REPORT INFORMATION
  Report Type: 
  Country: None (occurrence: None)
  Receive Date: 20070622
  Receipt Date: 20070613
  Transmission Date: 20071010
  Serious: Yes (Hospitalization)
  Sender: FDA-Public Use
  Company Number: PHHO2007JP10134

PATIENT
  Sex: Female
  Weight: 40 kg

DRUGS (11)
  1. DIOVAN [Suspect]
     Indication: HYPERTENSION
     Dosage: 80 MG, QD
     Route: 048
     Dates: start: 20030613, end: 20041024
  2. DIOVAN [Suspect]
     Dosage: 40 MG, QD
     Route: 048
     Dates: start: 20041024, end: 20060129
  3. LASIX [Concomitant]
     Indication: CARDIAC FAILURE
  4. CERCINE [Concomitant]
     Indication: INSOMNIA
  5. AMOBAN [Concomitant]
     Indication: INSOMNIA
  6. AMLODIN [Concomitant]
     Indication: HYPERTENSION
  7. OMEPRAL [Concomitant]
     Indication: GASTRIC ULCER
  8. PROMAC [Concomitant]
     Indication: GASTRIC ULCER
  9. ROHYPNOL [Concomitant]
     Indication: INSOMNIA
  10. MYSLEE [Concomitant]
     Indication: INSOMNIA
  11. PARIET [Concomitant]
     Indication: GASTRIC ULCER

REACTIONS (6)
  - ATRIAL FIBRILLATION [None]
  - BUNDLE BRANCH BLOCK LEFT [None]
  - CARDIAC FAILURE [None]
  - DYSPNOEA [None]
  - GASTRIC ULCER HAEMORRHAGE [None]
  - MELAENA [None]
